FAERS Safety Report 14333112 (Version 1)
Quarter: 2017Q4

REPORT INFORMATION
  Report Type: Spontaneous
  Country: CH (occurrence: CH)
  Receive Date: 20171228
  Receipt Date: 20171228
  Transmission Date: 20180321
  Serious: Yes (Hospitalization)
  Sender: FDA-Public Use
  Company Number: CH-PFIZER INC-2017537831

PATIENT
  Age: 59 Year
  Sex: Male

DRUGS (1)
  1. METHOTREXATE PFIZER [Suspect]
     Active Substance: METHOTREXATE
     Dosage: UNK 100MG IN THE LAST 10 DAYS

REACTIONS (2)
  - Overdose [Unknown]
  - Mucosal toxicity [Unknown]
